FAERS Safety Report 5246486-4 (Version None)
Quarter: 2007Q1

REPORT INFORMATION
  Report Type: 
  Country: None (occurrence: None)
  Receive Date: 20070226
  Receipt Date: 20070216
  Transmission Date: 20070707
  Serious: Yes (Hospitalization)
  Sender: FDA-Public Use
  Company Number: NL-BRISTOL-MYERS SQUIBB COMPANY-13682588

PATIENT
  Age: 63 Year
  Sex: Male
  Weight: 80 kg

DRUGS (20)
  1. CISPLATIN [Suspect]
     Indication: NON-SMALL CELL LUNG CANCER
     Route: 042
     Dates: start: 20061124
  2. PF-3512676 [Suspect]
     Indication: NON-SMALL CELL LUNG CANCER
     Route: 058
     Dates: start: 20061201
  3. GEMCITABINE [Suspect]
     Indication: NON-SMALL CELL LUNG CANCER
     Route: 042
     Dates: start: 20070126, end: 20070126
  4. ACENOCOUMAROL [Concomitant]
     Route: 048
     Dates: start: 19960101
  5. CITALOPRAM [Concomitant]
     Route: 048
     Dates: start: 20060501
  6. DIAZEPAM [Concomitant]
     Route: 048
     Dates: start: 20010101
  7. HYDROCHLOROTHIAZIDE [Concomitant]
     Route: 048
     Dates: start: 20040101
  8. NIFEDIPINE [Concomitant]
     Route: 048
     Dates: start: 20040101
  9. PARACETAMOL [Concomitant]
     Route: 048
     Dates: start: 20060101
  10. TEMAZEPAM [Concomitant]
     Route: 048
     Dates: start: 20010101
  11. MOVICOLON [Concomitant]
     Route: 048
     Dates: start: 20060501
  12. PANTOPRAZOLE SODIUM [Concomitant]
     Route: 048
     Dates: start: 20060901
  13. TRAMADOL HCL [Concomitant]
     Route: 048
     Dates: start: 20060901
  14. PROPYLTHIOURACIL [Concomitant]
     Route: 048
     Dates: start: 20060101
  15. FUCIDINE CAP [Concomitant]
     Route: 061
     Dates: start: 20061101
  16. DOCUSATE SODIUM [Concomitant]
     Route: 054
     Dates: start: 20010101
  17. EPOETIN ALFA [Concomitant]
     Route: 030
     Dates: start: 20061201
  18. NYSTATIN [Concomitant]
     Route: 048
     Dates: start: 20060113
  19. PEGFILGRASTIM [Concomitant]
     Route: 030
     Dates: start: 20060127
  20. AUGMENTIN '125' [Concomitant]
     Route: 048
     Dates: start: 20061203

REACTIONS (1)
  - DEHYDRATION [None]
